FAERS Safety Report 8670745 (Version 10)
Quarter: 2014Q4

REPORT INFORMATION
  Report Type: Spontaneous
  Country: US (occurrence: US)
  Receive Date: 20120718
  Receipt Date: 20141028
  Transmission Date: 20150529
  Serious: Yes (Hospitalization, Disabling, Other)
  Sender: FDA-Public Use
  Company Number: US-009507513-1207USA003751

PATIENT
  Sex: Female
  Weight: 74.38 kg

DRUGS (5)
  1. FOSAMAX [Suspect]
     Active Substance: ALENDRONATE SODIUM
     Indication: OSTEOPOROSIS
     Dosage: 70 MG, QW
     Route: 048
  2. ACTONEL [Suspect]
     Active Substance: RISEDRONATE SODIUM
     Indication: OSTEOPOROSIS
     Dosage: UNK
     Dates: start: 200406, end: 200910
  3. ALENDRONATE SODIUM. [Suspect]
     Active Substance: ALENDRONATE SODIUM
     Dosage: 70 MG, UNK
     Dates: start: 20100501, end: 20120224
  4. FOSAMAX [Suspect]
     Active Substance: ALENDRONATE SODIUM
     Dosage: 10 MG, QAM
     Route: 048
  5. ACTONEL [Suspect]
     Active Substance: RISEDRONATE SODIUM
     Indication: OSTEOPENIA

REACTIONS (75)
  - Oesophageal infection [Recovered/Resolved]
  - Asthma [Unknown]
  - Spinal operation [Unknown]
  - Peripheral venous disease [Recovered/Resolved]
  - Knee operation [Unknown]
  - Eye operation [Unknown]
  - Leukocytosis [Recovered/Resolved]
  - Abdominal discomfort [Unknown]
  - Cellulitis [Unknown]
  - Coronary arterial stent insertion [Unknown]
  - Knee arthroplasty [Unknown]
  - Impaired healing [Unknown]
  - Hypothyroidism [Unknown]
  - Sinus node dysfunction [Unknown]
  - Gouty arthritis [Unknown]
  - Myopathy [Unknown]
  - Benign breast lump removal [Unknown]
  - Mass excision [Unknown]
  - Lipoma excision [Unknown]
  - Blood potassium decreased [Unknown]
  - Back pain [Unknown]
  - Anxiety [Unknown]
  - Hypoalbuminaemia [Unknown]
  - Anaemia postoperative [Unknown]
  - Generalised oedema [Unknown]
  - Hypomagnesaemia [Unknown]
  - Osteonecrosis [Unknown]
  - Lobar pneumonia [Recovered/Resolved]
  - Chronic obstructive pulmonary disease [Not Recovered/Not Resolved]
  - Cataract [Unknown]
  - Carpal tunnel decompression [Unknown]
  - Diabetes mellitus [Unknown]
  - Irritable bowel syndrome [Unknown]
  - Hypovolaemia [Unknown]
  - Thrombocytopenia [Recovered/Resolved]
  - Coronary artery bypass [Unknown]
  - Soft tissue necrosis [Recovered/Resolved]
  - Diarrhoea [Recovering/Resolving]
  - Mass [Unknown]
  - Rib fracture [Unknown]
  - Spinal compression fracture [Unknown]
  - Fall [Unknown]
  - Osteoarthritis [Unknown]
  - Dacryostenosis acquired [Unknown]
  - Oedema [Unknown]
  - Cardiac disorder [Unknown]
  - Insomnia [Not Recovered/Not Resolved]
  - Escherichia urinary tract infection [Recovered/Resolved]
  - Nausea [Unknown]
  - Gastrooesophageal reflux disease [Unknown]
  - Cellulitis [Recovered/Resolved]
  - Cellulitis staphylococcal [Recovering/Resolving]
  - Low turnover osteopathy [Unknown]
  - Arteriosclerosis [Unknown]
  - Atrial fibrillation [Unknown]
  - Calcium deficiency [Unknown]
  - Restless legs syndrome [Unknown]
  - Femur fracture [Not Recovered/Not Resolved]
  - Osteomyelitis [Unknown]
  - Tendon sheath incision [Unknown]
  - Vitamin D deficiency [Unknown]
  - Oral candidiasis [Unknown]
  - Pneumonia [Unknown]
  - Cardiac pacemaker insertion [Unknown]
  - Hyperuricaemia [Unknown]
  - Anaemia [Unknown]
  - Carpal tunnel decompression [Unknown]
  - Kyphosis [Unknown]
  - Infection [Unknown]
  - Metabolic syndrome [Unknown]
  - Open reduction of fracture [Unknown]
  - Shoulder arthroplasty [Unknown]
  - Myocardial ischaemia [Unknown]
  - Intervertebral disc protrusion [Unknown]
  - Cardiac failure congestive [Unknown]

NARRATIVE: CASE EVENT DATE: 1996
